FAERS Safety Report 4264765-4 (Version None)
Quarter: 2004Q1

REPORT INFORMATION
  Report Type: 
  Country: None (occurrence: None)
  Receive Date: 20040102
  Receipt Date: 20031215
  Transmission Date: 20041129
  Serious: Yes (Hospitalization, Other)
  Sender: FDA-Public Use
  Company Number: JP_031202412

PATIENT
  Age: 66 Year
  Sex: Female

DRUGS (7)
  1. ONCOVIN [Suspect]
     Indication: LYMPHOMA
     Dosage: 1 MG
     Dates: start: 20000201
  2. CYCLOPHOSPHAMIDE [Concomitant]
  3. DOXORUBICIN HCL [Concomitant]
  4. PREDNISOLONE [Concomitant]
  5. RADIOTHERAPY [Concomitant]
  6. PIRARUBICIN [Concomitant]
  7. RITUXIMAB [Concomitant]

REACTIONS (18)
  - ACUTE CORONARY SYNDROME [None]
  - ANGER [None]
  - ARTERIAL STENOSIS [None]
  - BLOOD LACTATE DEHYDROGENASE INCREASED [None]
  - BLOOD SODIUM DECREASED [None]
  - CHEST DISCOMFORT [None]
  - COLD SWEAT [None]
  - DISEASE RECURRENCE [None]
  - ELECTROCARDIOGRAM POOR R-WAVE PROGRESSION [None]
  - ELECTROCARDIOGRAM ST SEGMENT ELEVATION [None]
  - ELECTROCARDIOGRAM ST-T SEGMENT ELEVATION [None]
  - ERYTHEMA [None]
  - LOCAL SWELLING [None]
  - LYMPHOMA [None]
  - MYOCARDIAL INFARCTION [None]
  - PANCYTOPENIA [None]
  - PULMONARY CONGESTION [None]
  - SKIN LESION [None]
